FAERS Safety Report 22621048 (Version 1)
Quarter: 2023Q2

REPORT INFORMATION
  Report Type: Spontaneous
  Country: US (occurrence: None)
  Receive Date: 20230616
  Receipt Date: 20230616
  Transmission Date: 20230721
  Serious: No
  Sender: FDA-Public Use
  Company Number: None

PATIENT
  Age: 73 Year
  Sex: Male

DRUGS (1)
  1. BOSENTAN [Suspect]
     Active Substance: BOSENTAN
     Indication: Pulmonary arterial hypertension
     Dosage: 62.5MG BID ORAL?
     Route: 048
     Dates: start: 20210614, end: 20230518

REACTIONS (3)
  - Pulmonary arterial wedge pressure increased [None]
  - Left ventricular dysfunction [None]
  - Cardiomyopathy [None]

NARRATIVE: CASE EVENT DATE: 20230518
